FAERS Safety Report 23479308 (Version 1)
Quarter: 2024Q1

REPORT INFORMATION
  Report Type: Report from Study
  Country: JP (occurrence: JP)
  Receive Date: 20240205
  Receipt Date: 20240205
  Transmission Date: 20240409
  Serious: Yes (Death)
  Sender: FDA-Public Use
  Company Number: JP-BAYER-2024A018146

PATIENT
  Age: 73 Year
  Sex: Female
  Weight: 61 kg

DRUGS (2)
  1. RIVAROXABAN [Suspect]
     Active Substance: RIVAROXABAN
     Indication: Atrial fibrillation
     Dosage: DAILY DOSE 10 MG
     Route: 048
     Dates: start: 20231218, end: 20240121
  2. PRASUGREL [Suspect]
     Active Substance: PRASUGREL
     Indication: Myocardial ischaemia
     Dosage: DAILY DOSE 3.75 MG
     Route: 048
     Dates: start: 20231221, end: 20231221

REACTIONS (2)
  - Death [Fatal]
  - Off label use [Unknown]

NARRATIVE: CASE EVENT DATE: 20231218
